FAERS Safety Report 4713154-4 (Version None)
Quarter: 2005Q3

REPORT INFORMATION
  Report Type: 
  Country: None (occurrence: None)
  Receive Date: 20050701
  Receipt Date: 20040617
  Transmission Date: 20060218
  Serious: Yes (Other)
  Sender: FDA-Public Use
  Company Number: 2004041213

PATIENT
  Age: 38 Year
  Sex: Male

DRUGS (3)
  1. ZOLOFT [Suspect]
     Indication: BIPOLAR DISORDER
     Dosage: (1 IN 1 D), ORAL
     Route: 048
     Dates: end: 20040524
  2. ZOLOFT [Suspect]
     Indication: MAJOR DEPRESSION
     Dosage: (1 IN 1 D), ORAL
     Route: 048
     Dates: end: 20040524
  3. OLANZAPINE [Suspect]
     Indication: ILL-DEFINED DISORDER
     Dosage: ORAL
     Route: 048

REACTIONS (17)
  - AGITATION [None]
  - ALCOHOLISM [None]
  - ANXIETY [None]
  - COGNITIVE DISORDER [None]
  - DIZZINESS [None]
  - DRUG WITHDRAWAL SYNDROME [None]
  - GENERAL PHYSICAL HEALTH DETERIORATION [None]
  - IMMOBILE [None]
  - MOOD SWINGS [None]
  - NAUSEA [None]
  - NERVOUSNESS [None]
  - PALPITATIONS [None]
  - PULSE ABNORMAL [None]
  - SLEEP DISORDER [None]
  - SUICIDAL IDEATION [None]
  - TENSION [None]
  - WEIGHT INCREASED [None]
